FAERS Safety Report 19194144 (Version 1)
Quarter: 2021Q2

REPORT INFORMATION
  Report Type: Spontaneous
  Country: US (occurrence: US)
  Receive Date: 20210428
  Receipt Date: 20210428
  Transmission Date: 20210717
  Serious: Yes (Life-Threatening, Other)
  Sender: FDA-Public Use
  Company Number: None

PATIENT
  Age: 52 Year
  Sex: Male
  Weight: 106.14 kg

DRUGS (1)
  1. LURASIDONE (LURASIDONE HCL 40MG TAB) [Suspect]
     Active Substance: LURASIDONE HYDROCHLORIDE
     Indication: PSYCHOTIC DISORDER
     Route: 048
     Dates: start: 20140529, end: 20210312

REACTIONS (3)
  - Hyperglycaemia [None]
  - Diabetes mellitus [None]
  - Hypertriglyceridaemia [None]

NARRATIVE: CASE EVENT DATE: 20210305
